FAERS Safety Report 7389769-4 (Version None)
Quarter: 2011Q1

REPORT INFORMATION
  Report Type: 
  Country: None (occurrence: None)
  Receive Date: 20110324
  Receipt Date: 20110316
  Transmission Date: 20110831
  Serious: Yes (Other)
  Sender: FDA-Public Use
  Company Number: 861588

PATIENT
  Age: 15 Year
  Sex: Male

DRUGS (3)
  1. (ANTIBIOTICS) [Concomitant]
  2. CEFEPIME HYDROCHLORIDE [Suspect]
     Indication: POST PROCEDURAL INFECTION
  3. CEFEPIME HYDROCHLORIDE [Suspect]
     Indication: SEPSIS

REACTIONS (2)
  - LUPUS-LIKE SYNDROME [None]
  - ANAEMIA [None]
